FAERS Safety Report 5235842-6 (Version None)
Quarter: 2007Q1

REPORT INFORMATION
  Report Type: 
  Country: None (occurrence: None)
  Receive Date: 20070212
  Receipt Date: 20070207
  Transmission Date: 20070707
  Serious: Yes (Hospitalization)
  Sender: FDA-Public Use
  Company Number: HQWYE334103JAN07

PATIENT
  Sex: Female
  Weight: 57.66 kg

DRUGS (6)
  1. EFFEXOR XR [Suspect]
     Indication: ANXIETY
     Route: 048
     Dates: start: 20061015, end: 20061224
  2. EFFEXOR XR [Suspect]
     Route: 048
     Dates: start: 20061226
  3. DHEA [Concomitant]
     Dosage: ^CAPSULES 50 MG/GEL 10 MG QD (DERMAL)^
  4. ESTROGENS [Concomitant]
     Dosage: DOSE AND FREQUENCY UNSPECIFIED
  5. SYNTHROID [Concomitant]
     Dates: start: 20061005
  6. PROGESTERONE [Concomitant]
     Dosage: DOSE AND FREQUENCY UNSPECIFIED

REACTIONS (19)
  - ANXIETY [None]
  - ASTHENIA [None]
  - BLOOD POTASSIUM DECREASED [None]
  - BLOOD SODIUM DECREASED [None]
  - CONDITION AGGRAVATED [None]
  - DECREASED APPETITE [None]
  - DIARRHOEA [None]
  - DIZZINESS [None]
  - DRUG WITHDRAWAL SYNDROME [None]
  - EYE PAIN [None]
  - FATIGUE [None]
  - FEAR [None]
  - FEELING ABNORMAL [None]
  - HEADACHE [None]
  - HEART RATE INCREASED [None]
  - NAUSEA [None]
  - PALPITATIONS [None]
  - RHINALGIA [None]
  - VERTIGO [None]
